FAERS Safety Report 4341793-1 (Version None)
Quarter: 2004Q2

REPORT INFORMATION
  Report Type: 
  Country: None (occurrence: None)
  Receive Date: 20040415
  Receipt Date: 20040401
  Transmission Date: 20050107
  Serious: Yes (Hospitalization)
  Sender: FDA-Public Use
  Company Number: 2004-06811

PATIENT
  Age: 55 Year
  Sex: Female

DRUGS (4)
  1. ADEFOVIR DIPIVOXIL (ADEFOVIR DIPIVOXIL) [Suspect]
     Indication: HEPATITIS B
     Dosage: 10 MG, QOD, ORAL
     Route: 048
     Dates: start: 20030508, end: 20030101
  2. ADEFOVIR DIPIVOXIL (ADEFOVIR DIPIVOXIL) [Suspect]
     Indication: HEPATITIS B
     Dosage: 10 MG, QOD, ORAL
     Route: 048
     Dates: start: 20030704, end: 20030101
  3. ADEFOVIR DIPIVOXIL (ADEFOVIR DIPIVOXIL) [Suspect]
     Indication: HEPATITIS B
     Dosage: 10 MG, QOD, ORAL
     Route: 048
     Dates: start: 20030313, end: 20030507
  4. ADEFOVIR DIPIVOXIL (ADEFOVIR DIPIVOXIL) [Suspect]
     Indication: HEPATITIS B
     Dosage: 10 MG, QOD, ORAL
     Route: 048
     Dates: start: 20030906, end: 20040201

REACTIONS (2)
  - PANCREATITIS ACUTE [None]
  - PORTAL VEIN THROMBOSIS [None]
